FAERS Safety Report 9482371 (Version 5)
Quarter: 2013Q4

REPORT INFORMATION
  Report Type: Report from Study
  Country: US (occurrence: US)
  Receive Date: 20130828
  Receipt Date: 20131002
  Transmission Date: 20140711
  Serious: Yes (Death, Life-Threatening, Hospitalization)
  Sender: FDA-Public Use
  Company Number: PHHO2013US009173

PATIENT
  Age: 29 Year
  Sex: Male
  Weight: 85.4 kg

DRUGS (5)
  1. METHYLPREDNISOLONE ACETATE [Suspect]
     Dosage: UNK
  2. HSC835 [Suspect]
     Indication: HAEMATOLOGICAL MALIGNANCY
     Dosage: 0.29 NC/KG X10^8
     Dates: start: 20130605, end: 20130605
  3. HSC835 [Suspect]
     Dosage: 0.29 NC/KG X10^8
     Dates: start: 20130606, end: 20130606
  4. CYTOXAN [Suspect]
  5. CYCLOSPORIN A [Concomitant]

REACTIONS (6)
  - Leukoencephalopathy [Fatal]
  - Gastrointestinal haemorrhage [Fatal]
  - Urinary bladder haemorrhage [Fatal]
  - Thrombotic thrombocytopenic purpura [Fatal]
  - Pneumonia cytomegaloviral [Fatal]
  - Pulmonary alveolar haemorrhage [Fatal]
